FAERS Safety Report 22858003 (Version 4)
Quarter: 2023Q4

REPORT INFORMATION
  Report Type: Report from Study
  Country: US (occurrence: US)
  Receive Date: 20230824
  Receipt Date: 20231222
  Transmission Date: 20240109
  Serious: Yes (Other)
  Sender: FDA-Public Use
  Company Number: US-ABBVIE-5379348

PATIENT
  Age: 37 Year
  Sex: Female
  Weight: 72.574 kg

DRUGS (1)
  1. HUMIRA [Suspect]
     Active Substance: ADALIMUMAB
     Indication: Crohn^s disease
     Dosage: LAST ADMIN DATE WAS JUL 2023.
     Route: 058
     Dates: start: 20221105

REACTIONS (7)
  - Lupus-like syndrome [Unknown]
  - Loss of personal independence in daily activities [Unknown]
  - Gait inability [Recovering/Resolving]
  - Peripheral swelling [Unknown]
  - Arthritis [Unknown]
  - Mobility decreased [Unknown]
  - Arthralgia [Unknown]

NARRATIVE: CASE EVENT DATE: 20230706
